FAERS Safety Report 7730010-8 (Version None)
Quarter: 2011Q3

REPORT INFORMATION
  Report Type: 
  Country: None (occurrence: None)
  Receive Date: 20110906
  Receipt Date: 20110824
  Transmission Date: 20111222
  Serious: Yes (Other)
  Sender: FDA-Public Use
  Company Number: PHHY2011AU76071

PATIENT
  Age: 76 Year
  Sex: Female

DRUGS (2)
  1. TERBUTALINE [Concomitant]
  2. ONBREZ [Suspect]
     Dosage: UNK UKN, UNK

REACTIONS (1)
  - SUPRAVENTRICULAR TACHYCARDIA [None]
